FAERS Safety Report 23949565 (Version 1)
Quarter: 2024Q2

REPORT INFORMATION
  Report Type: Spontaneous
  Country: US (occurrence: None)
  Receive Date: 20240606
  Receipt Date: 20240606
  Transmission Date: 20240716
  Serious: Yes (Hospitalization)
  Sender: FDA-Public Use
  Company Number: None

PATIENT
  Age: 59 Year
  Sex: Female

DRUGS (9)
  1. AMBRISENTAN [Suspect]
     Active Substance: AMBRISENTAN
     Indication: Pulmonary arterial hypertension
     Dosage: FREQUENCY : DAILY;?
     Route: 048
     Dates: start: 20161110
  2. TADALAFIL [Concomitant]
     Active Substance: TADALAFIL
  3. NORCO [Concomitant]
     Active Substance: ACETAMINOPHEN\HYDROCODONE BITARTRATE
  4. FUROSEMIDE [Concomitant]
     Active Substance: FUROSEMIDE
  5. CULTURELLE [Concomitant]
     Active Substance: LACTOBACILLUS RHAMNOSUS
  6. OZEMPIC [Concomitant]
     Active Substance: SEMAGLUTIDE
  7. IPRATROPIUM INHL SOLN [Concomitant]
  8. ALVESCO HFA [Concomitant]
  9. NABUMETONE [Concomitant]
     Active Substance: NABUMETONE

REACTIONS (3)
  - Cellulitis [None]
  - Peripheral swelling [None]
  - Pain in extremity [None]

NARRATIVE: CASE EVENT DATE: 20240518
